FAERS Safety Report 10286039 (Version 2)
Quarter: 2014Q3

REPORT INFORMATION
  Report Type: Spontaneous
  Country: JP (occurrence: JP)
  Receive Date: 20140709
  Receipt Date: 20140725
  Transmission Date: 20150326
  Serious: Yes (Hospitalization)
  Sender: FDA-Public Use
  Company Number: JP-ROCHE-1431475

PATIENT
  Age: 79 Year
  Sex: Female

DRUGS (2)
  1. XELODA [Suspect]
     Active Substance: CAPECITABINE
     Indication: MALIGNANT NEOPLASM OF UNKNOWN PRIMARY SITE
     Dosage: DOSAGE IS UNCERTAIN.
     Route: 048
     Dates: start: 20140522, end: 201406
  2. AVASTIN [Suspect]
     Active Substance: BEVACIZUMAB
     Indication: MALIGNANT NEOPLASM OF UNKNOWN PRIMARY SITE
     Dosage: DOSAGE IS UNCERTAIN.
     Route: 041
     Dates: start: 20140522, end: 20140522

REACTIONS (1)
  - Rectal prolapse [Recovering/Resolving]

NARRATIVE: CASE EVENT DATE: 201406
